FAERS Safety Report 10239728 (Version 1)
Quarter: 2014Q2

REPORT INFORMATION
  Report Type: Spontaneous
  Country: BR (occurrence: BR)
  Receive Date: 20140616
  Receipt Date: 20140616
  Transmission Date: 20141212
  Serious: Yes (Hospitalization)
  Sender: FDA-Public Use
  Company Number: BR-009507513-1406BRA007999

PATIENT
  Sex: Male
  Weight: 15 kg

DRUGS (1)
  1. SINGULAIR BABY [Suspect]
     Indication: ASTHMA
     Dosage: 4 MG, WHEN NECESSARY
     Route: 048
     Dates: start: 2011

REACTIONS (3)
  - Asthma [Recovered/Resolved]
  - Drug ineffective [Recovered/Resolved]
  - Overdose [Unknown]
